FAERS Safety Report 9283458 (Version 1)
Quarter: 2013Q2

REPORT INFORMATION
  Report Type: Spontaneous
  Country: US (occurrence: US)
  Receive Date: 20130510
  Receipt Date: 20130510
  Transmission Date: 20140414
  Serious: No
  Sender: FDA-Public Use
  Company Number: US-GLAXOSMITHKLINE-A1010097A

PATIENT
  Age: 55 Year
  Sex: Female

DRUGS (6)
  1. TYKERB [Suspect]
     Indication: PRODUCT USED FOR UNKNOWN INDICATION
     Dosage: 250MG FOUR TIMES PER DAY
     Route: 048
     Dates: start: 20120412, end: 20130123
  2. DEXAMETHASONE [Concomitant]
  3. GABAPENTIN [Concomitant]
  4. LEVETIRACETAM [Concomitant]
  5. NORCO [Concomitant]
  6. XELODA [Concomitant]
     Indication: PRODUCT USED FOR UNKNOWN INDICATION
     Dosage: 500MG SEE DOSAGE TEXT
     Route: 048
     Dates: start: 20120824, end: 20130119

REACTIONS (1)
  - Diarrhoea [Unknown]
